FAERS Safety Report 21792411 (Version 2)
Quarter: 2023Q1

REPORT INFORMATION
  Report Type: Spontaneous
  Country: IL (occurrence: IL)
  Receive Date: 20221229
  Receipt Date: 20230128
  Transmission Date: 20230417
  Serious: Yes (Other)
  Sender: FDA-Public Use
  Company Number: IL-AMGEN-ISRSP2022206356

PATIENT
  Age: 50 Year
  Sex: Female

DRUGS (3)
  1. NEUPOGEN [Suspect]
     Active Substance: FILGRASTIM
     Indication: Neutropenia
     Dosage: 30 MU, TWICE A WEEK FOR 2  WEEKS, FOLLOWED BY A WEEK OFF
     Route: 065
     Dates: start: 2015
  2. ABRAXANE [Concomitant]
     Active Substance: PACLITAXEL
     Indication: Breast cancer
     Dosage: UNK
     Route: 065
  3. CARBOPLATIN [Concomitant]
     Active Substance: CARBOPLATIN
     Indication: Breast cancer
     Dosage: UNK

REACTIONS (3)
  - Breast cancer recurrent [Unknown]
  - Off label use [Unknown]
  - Injection site pain [Unknown]

NARRATIVE: CASE EVENT DATE: 20150101
